FAERS Safety Report 4378569-5 (Version None)
Quarter: 2004Q2

REPORT INFORMATION
  Report Type: 
  Country: None (occurrence: None)
  Receive Date: 20040609
  Receipt Date: 20040526
  Transmission Date: 20050107
  Serious: Yes (Other)
  Sender: FDA-Public Use
  Company Number: US_990115676

PATIENT
  Age: 78 Year
  Sex: Male
  Weight: 73 kg

DRUGS (7)
  1. HUMALOG [Suspect]
     Indication: DIABETES MELLITUS
     Dosage: 11 U
     Dates: start: 20000101
  2. HUMULIN R [Suspect]
     Indication: DIABETES MELLITUS
     Dates: end: 19980401
  3. HUMULIN N [Suspect]
     Indication: DIABETES MELLITUS
     Dosage: 22.5 U/D
     Dates: start: 19780101
  4. NOVOLIN N [Concomitant]
  5. UNIVASC [Concomitant]
  6. GLUCOSE [Concomitant]
  7. ZESTRIL [Concomitant]

REACTIONS (9)
  - ARTHRITIS [None]
  - CARPAL TUNNEL DECOMPRESSION [None]
  - DIABETES MELLITUS INADEQUATE CONTROL [None]
  - DYSPHONIA [None]
  - GINGIVAL PAIN [None]
  - INCREASED APPETITE [None]
  - INJECTION SITE HAEMORRHAGE [None]
  - LOSS OF CONSCIOUSNESS [None]
  - PROSTATE CANCER [None]
